FAERS Safety Report 4469124-7 (Version None)
Quarter: 2004Q4

REPORT INFORMATION
  Report Type: 
  Country: None (occurrence: None)
  Receive Date: 20041008
  Receipt Date: 20040311
  Transmission Date: 20050328
  Serious: Yes (Death)
  Sender: FDA-Public Use
  Company Number: 200412959JP

PATIENT
  Age: 63 Year
  Sex: Female

DRUGS (8)
  1. ARAVA [Suspect]
     Indication: RHEUMATOID ARTHRITIS
     Route: 048
     Dates: start: 20031127, end: 20040918
  2. PREDNISOLONE [Concomitant]
     Indication: RHEUMATOID ARTHRITIS
     Route: 048
  3. FOSAMAC TABLETS [Concomitant]
     Indication: OSTEOPOROSIS
     Route: 048
  4. GASTER [Concomitant]
     Indication: GASTRIC ULCER
     Route: 048
  5. LIPITOR [Concomitant]
     Indication: HYPERLIPIDAEMIA
     Route: 048
  6. PROMAC                                  /JPN/ [Concomitant]
     Indication: GASTRITIS
     Route: 048
  7. NEUROTROPIN [Concomitant]
     Indication: PAIN
     Dates: start: 20040914, end: 20040916
  8. ELCITONIN [Concomitant]
     Indication: PAIN
     Dates: start: 20040914, end: 20040916

REACTIONS (15)
  - ALANINE AMINOTRANSFERASE INCREASED [None]
  - ASPARTATE AMINOTRANSFERASE INCREASED [None]
  - BLOOD CHOLESTEROL INCREASED [None]
  - BLOOD LACTATE DEHYDROGENASE DECREASED [None]
  - CARDIAC DISORDER [None]
  - CARDIO-RESPIRATORY ARREST [None]
  - DYSPHORIA [None]
  - FEELING ABNORMAL [None]
  - HAEMATOCRIT DECREASED [None]
  - HAEMOGLOBIN DECREASED [None]
  - HYPERLIPIDAEMIA [None]
  - LYMPHOCYTE PERCENTAGE DECREASED [None]
  - RED BLOOD CELL COUNT DECREASED [None]
  - RETICULOCYTE PERCENTAGE INCREASED [None]
  - VENTRICULAR FIBRILLATION [None]
